FAERS Safety Report 8190213-8 (Version None)
Quarter: 2012Q1

REPORT INFORMATION
  Report Type: 
  Country: None (occurrence: None)
  Receive Date: 20120307
  Receipt Date: 20120307
  Transmission Date: 20120608
  Serious: No
  Sender: FDA-Public Use
  Company Number: US-PFIZER INC-K201100675

PATIENT
  Sex: Female
  Weight: 102.4 kg

DRUGS (9)
  1. AZITHROMYCIN [Suspect]
     Indication: SINUSITIS
     Dosage: UNK
  2. AZITHROMYCIN [Suspect]
     Indication: TOOTH INFECTION
  3. LEVOXYL [Suspect]
     Dosage: 25 UG, 1X/DAY
     Route: 048
     Dates: start: 20110222, end: 20110101
  4. SYNTHROID [Suspect]
     Dosage: 25 UG, 1X/DAY
     Route: 048
     Dates: start: 20110301, end: 20110303
  5. XANAX [Concomitant]
     Indication: PANIC DISORDER
     Dosage: 0.25 MG, 3X/DAY
     Route: 048
  6. CLINDAMYCIN HCL [Suspect]
     Indication: SINUSITIS
     Dosage: UNK
     Route: 048
     Dates: start: 20110523, end: 20110526
  7. VENLAFAXINE HCL [Suspect]
     Indication: DEPRESSION
     Dosage: 75 MG, 2X/DAY
     Route: 048
  8. CLINDAMYCIN HCL [Suspect]
     Indication: TOOTH INFECTION
  9. XANAX [Concomitant]
     Indication: DEPRESSION

REACTIONS (5)
  - ASTHENIA [None]
  - FEELING ABNORMAL [None]
  - HEADACHE [None]
  - DIZZINESS [None]
  - DYSSTASIA [None]
